FAERS Safety Report 24304017 (Version 1)
Quarter: 2024Q3

REPORT INFORMATION
  Report Type: Spontaneous
  Country: CN (occurrence: CN)
  Receive Date: 20240910
  Receipt Date: 20240910
  Transmission Date: 20241016
  Serious: Yes (Hospitalization)
  Sender: PAREXEL
  Company Number: CN-SHANGHAI JUNSHI BIOSCIENCES CO., LTD.-CN2024011267

PATIENT

DRUGS (3)
  1. TORIPALIMAB [Suspect]
     Active Substance: TORIPALIMAB
     Indication: Renal cancer
     Dosage: 100 MG, Q2W
     Route: 041
     Dates: start: 20240203, end: 20240814
  2. AXITINIB [Suspect]
     Active Substance: AXITINIB
     Indication: Renal cancer
     Dosage: ONE CAPSULE IN THE MORNING AND EVENING
     Route: 048
     Dates: start: 20240203, end: 20240203
  3. AXITINIB [Suspect]
     Active Substance: AXITINIB
     Dosage: ONE CAPSULE EVERY NIGHT
     Route: 048
     Dates: start: 20240814

REACTIONS (4)
  - Blood pressure decreased [Recovering/Resolving]
  - Asthenia [Recovering/Resolving]
  - Adrenal insufficiency [Recovering/Resolving]
  - Off label use [Unknown]

NARRATIVE: CASE EVENT DATE: 20240203
